FAERS Safety Report 5430250-7 (Version None)
Quarter: 2007Q3

REPORT INFORMATION
  Report Type: 
  Country: None (occurrence: None)
  Receive Date: 20070731
  Receipt Date: 20070416
  Transmission Date: 20080115
  Serious: No
  Sender: FDA-Public Use
  Company Number: US200704003691

PATIENT
  Age: 51 Year
  Sex: Female

DRUGS (1)
  1. BYETTA [Suspect]
     Indication: WEIGHT DECREASED
     Dosage: 10 UG, 2/D, SUBCUTANEOUS
     Route: 058
     Dates: start: 20060101

REACTIONS (1)
  - ACCIDENTAL OVERDOSE [None]
